FAERS Safety Report 9238810 (Version 1)
Quarter: 2013Q1

REPORT INFORMATION
  Report Type: Spontaneous
  Country: US (occurrence: None)
  Receive Date: 20121107
  Receipt Date: 20121107
  Transmission Date: 20140127
  Serious: No
  Sender: FDA-Public Use
  Company Number: 2012HGS-003822

PATIENT
  Age: 49 Year
  Sex: Female
  Weight: 63.5 kg

DRUGS (12)
  1. BENLYSTA [Suspect]
     Indication: SYSTEMIC LUPUS ERYTHEMATOSUS
     Dosage: 1 IN 28 D, INTRAVENOUS DRIP
     Route: 041
     Dates: start: 20120618
  2. PLAQUENIL (HYDROXYCHLOROQUINE PHOSPHATE ) (HYDROXYCHLOROQUINE PHOSPHATE) [Concomitant]
  3. FENTANYL (FENTANYL) [Concomitant]
  4. MOBIC (MELOXICAM) (MELOXICAM) [Concomitant]
  5. DOXYCYCLINE (DOXYCYCLINE) (DOXYCYCLINE) [Concomitant]
  6. LEVOTHYROXINE (LEVOTHYROXINE)(LEVOTHYROXINE) [Concomitant]
  7. CRESTOR (ROSUVASTATUB CALCIUM)(ROSUVASTATIN CALCIUM) [Concomitant]
  8. ZOLOFT (SERTRALINE HYDROCHLORIDE) (SERTRALINE HYDROCHLORIDE) [Concomitant]
  9. VIVELLE (ESTRADIOL) (ESTRADIOL) [Concomitant]
  10. VIVELLE (ESTRADIOL) (ESTRADIOL) [Concomitant]
  11. OXYCODONE (OXYCODONE) (OXYCODONE) [Concomitant]
  12. SOMA (CARISOPRODOL) (CARISOPRODOL) [Concomitant]

REACTIONS (9)
  - Fatigue [None]
  - Hyperhidrosis [None]
  - Dizziness [None]
  - Throat tightness [None]
  - Dyspnoea [None]
  - Chest discomfort [None]
  - Pain in extremity [None]
  - Nausea [None]
  - Diarrhoea [None]
